FAERS Safety Report 20680465 (Version 2)
Quarter: 2022Q2

REPORT INFORMATION
  Report Type: Spontaneous
  Country: US (occurrence: None)
  Receive Date: 20220406
  Receipt Date: 20220420
  Transmission Date: 20220721
  Serious: No
  Sender: FDA-Public Use
  Company Number: 2022A104483

PATIENT
  Age: 18409 Day
  Sex: Female
  Weight: 65.8 kg

DRUGS (1)
  1. FASENRA [Suspect]
     Active Substance: BENRALIZUMAB
     Indication: Asthma
     Route: 058
     Dates: start: 202102

REACTIONS (9)
  - Blood blister [Unknown]
  - Haemorrhage [Unknown]
  - Asthma [Unknown]
  - Chest discomfort [Unknown]
  - Aphonia [Unknown]
  - Multiple allergies [Unknown]
  - Oral pain [Unknown]
  - Headache [Unknown]
  - Drug ineffective [Unknown]

NARRATIVE: CASE EVENT DATE: 20210304
